FAERS Safety Report 9293835 (Version 1)
Quarter: 2013Q2

REPORT INFORMATION
  Report Type: Spontaneous
  Country: US (occurrence: US)
  Receive Date: 20130516
  Receipt Date: 20130516
  Transmission Date: 20140414
  Serious: Yes (Other)
  Sender: FDA-Public Use
  Company Number: PHHY2013US042363

PATIENT
  Age: 101 Year
  Sex: Female

DRUGS (5)
  1. LISINOPRIL [Suspect]
  2. HYDROCHLOROTHIAZIDE [Concomitant]
  3. LEVOTHYROXINE [Concomitant]
  4. CLOPIDOGREL [Concomitant]
  5. POTASSIUM CHLORIDE [Concomitant]

REACTIONS (2)
  - Hallucination, visual [Recovered/Resolved]
  - Blood sodium decreased [Recovered/Resolved]
